FAERS Safety Report 10241757 (Version 1)
Quarter: 2014Q2

REPORT INFORMATION
  Report Type: Spontaneous
  Country: US (occurrence: US)
  Receive Date: 20140617
  Receipt Date: 20140617
  Transmission Date: 20141212
  Serious: Yes (Hospitalization, Other)
  Sender: FDA-Public Use
  Company Number: US-ACTAVIS-2014-13506

PATIENT
  Age: 45 Year
  Sex: Male

DRUGS (2)
  1. SERTRALINE HYDROCHLORIDE (WATSON LABORATORIES) [Suspect]
     Indication: DEPRESSION
     Dosage: 100 MG, UNK
     Route: 065
  2. OMEPRAZOLE [Concomitant]
     Indication: PRODUCT USED FOR UNKNOWN INDICATION
     Dosage: UNK
     Route: 065

REACTIONS (1)
  - Mania [Recovered/Resolved]
